FAERS Safety Report 8307342-8 (Version None)
Quarter: 2012Q2

REPORT INFORMATION
  Report Type: 
  Country: None (occurrence: None)
  Receive Date: 20120424
  Receipt Date: 20120416
  Transmission Date: 20120825
  Serious: Yes (Hospitalization, Other)
  Sender: FDA-Public Use
  Company Number: US-BAYER-2011-122084

PATIENT
  Age: 18 Year
  Sex: Female
  Weight: 63 kg

DRUGS (2)
  1. YAZ [Suspect]
     Indication: OVARIAN CYST
     Dosage: UNK
     Dates: start: 20070101, end: 20100101
  2. YASMIN [Suspect]
     Indication: OVARIAN CYST
     Dosage: UNK
     Dates: start: 20070101, end: 20100101

REACTIONS (9)
  - ANXIETY [None]
  - GALLBLADDER DISORDER [None]
  - EMOTIONAL DISTRESS [None]
  - HYPOKALAEMIA [None]
  - PAIN [None]
  - GASTRIC DISORDER [None]
  - GENERAL PHYSICAL HEALTH DETERIORATION [None]
  - HYPOMAGNESAEMIA [None]
  - HEPATIC NEOPLASM [None]
